FAERS Safety Report 11334186 (Version 1)
Quarter: 2015Q3

REPORT INFORMATION
  Report Type: Spontaneous
  Country: US (occurrence: US)
  Receive Date: 20150803
  Receipt Date: 20150803
  Transmission Date: 20151125
  Serious: No
  Sender: FDA-Public Use
  Company Number: US-SA-2015SA022008

PATIENT
  Age: 56 Year
  Sex: Female

DRUGS (4)
  1. LIOTHYRONINE SODIUM. [Concomitant]
     Active Substance: LIOTHYRONINE SODIUM
  2. ZOLPIDEM TARTRATE EXTENDED RELEASE [Suspect]
     Active Substance: ZOLPIDEM TARTRATE
     Route: 048
  3. HYDROCODONE W/ACETAMINOPHEN [Concomitant]
     Active Substance: ACETAMINOPHEN\HYDROCODONE BITARTRATE
  4. ALPRAZOLAM. [Concomitant]
     Active Substance: ALPRAZOLAM

REACTIONS (1)
  - Abdominal discomfort [Unknown]
